FAERS Safety Report 7023883-8 (Version None)
Quarter: 2010Q4

REPORT INFORMATION
  Report Type: 
  Country: None (occurrence: None)
  Receive Date: 20101001
  Receipt Date: 20100921
  Transmission Date: 20110411
  Serious: Yes (Hospitalization)
  Sender: FDA-Public Use
  Company Number: MX-JNJFOC-20100907241

PATIENT
  Age: 51 Year
  Sex: Female
  Weight: 79.5 kg

DRUGS (7)
  1. GOLIMUMAB [Suspect]
     Indication: RHEUMATOID ARTHRITIS
     Route: 058
  2. GOLIMUMAB [Suspect]
     Route: 058
  3. PREDNISONE [Concomitant]
     Indication: RHEUMATOID ARTHRITIS
     Route: 048
  4. LEFLUNOMIDE [Concomitant]
     Indication: RHEUMATOID ARTHRITIS
     Route: 048
  5. OMEPRAZOLE [Concomitant]
     Indication: PROPHYLAXIS
     Route: 048
  6. ENALAPRIL MALEATE [Concomitant]
     Indication: HYPERTENSION
     Route: 048
  7. DICLOFENAC SODIUM [Concomitant]
     Route: 048

REACTIONS (1)
  - HYSTERECTOMY [None]
